FAERS Safety Report 16165239 (Version 1)
Quarter: 2019Q2

REPORT INFORMATION
  Report Type: Spontaneous
  Country: KR (occurrence: KR)
  Receive Date: 20190405
  Receipt Date: 20190405
  Transmission Date: 20190711
  Serious: Yes (Other)
  Sender: FDA-Public Use
  Company Number: KR-MYLANLABS-2019M1031155

PATIENT
  Age: 5 Year
  Sex: Female

DRUGS (20)
  1. CIDOFOVIR. [Suspect]
     Active Substance: CIDOFOVIR
     Dosage: MAINTENANCE DOSE
     Route: 042
  2. BASILIXIMAB [Suspect]
     Active Substance: BASILIXIMAB
     Indication: IMMUNOSUPPRESSANT DRUG THERAPY
     Dosage: 12 MILLIGRAM/SQ. METER
     Route: 065
  3. PREDNISONE. [Suspect]
     Active Substance: PREDNISONE
     Indication: DIFFUSE LARGE B-CELL LYMPHOMA
  4. RITUXIMAB. [Suspect]
     Active Substance: RITUXIMAB
     Indication: DIFFUSE LARGE B-CELL LYMPHOMA
     Dosage: RECEIVED 10 CYCLES OF CHEMOTHERAPY
     Route: 065
  5. CIDOFOVIR. [Suspect]
     Active Substance: CIDOFOVIR
     Indication: BK VIRUS INFECTION
     Dosage: INDUCTION DOSE
     Route: 042
  6. TACROLIMUS. [Suspect]
     Active Substance: TACROLIMUS
     Indication: IMMUNOSUPPRESSANT DRUG THERAPY
     Dosage: 0.3 MILLIGRAM/KILOGRAM, QD
     Route: 065
  7. TACROLIMUS. [Suspect]
     Active Substance: TACROLIMUS
     Dosage: TACROLIMUS DOSAGES WAS TITRATED FOR A TROUGH LEVEL OF 10-15 NG/ML
     Route: 065
  8. TACROLIMUS. [Suspect]
     Active Substance: TACROLIMUS
     Dosage: TACROLIMUS DOSE INCREASED TO A TROUGH LEVEL OF 14.3 NG/ML
     Route: 065
  9. TACROLIMUS. [Suspect]
     Active Substance: TACROLIMUS
     Dosage: TACROLIMUS DOSAGE WAS AGAIN REDUCED TO A GOAL TROUGH LEVEL OF 2 NG/ML
     Route: 065
  10. PREDNISONE. [Suspect]
     Active Substance: PREDNISONE
     Indication: IMMUNOSUPPRESSANT DRUG THERAPY
     Dosage: MAINTENANCE IMMUNOSUPPRESSANT DRUG THERAPY AS WELL RECEIVED IN CHEMOTHERAPY
     Route: 065
  11. CYCLOPHOSPHAMIDE. [Suspect]
     Active Substance: CYCLOPHOSPHAMIDE
     Indication: DIFFUSE LARGE B-CELL LYMPHOMA
     Dosage: RECEIVED 10 CYCLES OF CHEMOTHERAPY FOR 10 MONTHS
     Route: 065
  12. DOXORUBICIN [Suspect]
     Active Substance: DOXORUBICIN
     Indication: DIFFUSE LARGE B-CELL LYMPHOMA
     Dosage: RECEIVED 10 CYCLES OF CHEMOTHERAPY FOR 10 MONTHS
     Route: 065
  13. LEFLUNOMIDE. [Concomitant]
     Active Substance: LEFLUNOMIDE
     Dosage: MAINTENANCE DOSE
     Route: 048
  14. TACROLIMUS. [Suspect]
     Active Substance: TACROLIMUS
     Dosage: TACROLIMUS DOSAGE WAS REDUCED WITH A GOAL TROUGH LEVEL OF ABOUT 3-5 NG/ML
     Route: 065
  15. SOLU-MEDROL [Suspect]
     Active Substance: METHYLPREDNISOLONE SODIUM SUCCINATE
     Dosage: FOR ONE MONTH
     Route: 065
  16. SOLU-MEDROL [Suspect]
     Active Substance: METHYLPREDNISOLONE SODIUM SUCCINATE
     Indication: IMMUNOSUPPRESSANT DRUG THERAPY
     Dosage: 7.5 MILLIGRAM/KILOGRAM, Q8H
     Route: 065
  17. VINCRISTINE [Suspect]
     Active Substance: VINCRISTINE
     Indication: DIFFUSE LARGE B-CELL LYMPHOMA
     Dosage: RECEIVED 10 CYCLES OF CHEMOTHERAPY FOR 10 MONTHS
     Route: 065
  18. SOLU-MEDROL [Suspect]
     Active Substance: METHYLPREDNISOLONE SODIUM SUCCINATE
     Dosage: IN THE OPERATION ROOM
     Route: 065
  19. MYCOPHENOLATE MOFETIL. [Suspect]
     Active Substance: MYCOPHENOLATE MOFETIL
     Indication: IMMUNOSUPPRESSANT DRUG THERAPY
     Route: 065
  20. LEFLUNOMIDE. [Concomitant]
     Active Substance: LEFLUNOMIDE
     Indication: BK VIRUS INFECTION
     Dosage: INDUCTION DOSE FOR TWO DAYS
     Route: 048

REACTIONS (3)
  - Condition aggravated [Unknown]
  - Acute kidney injury [Unknown]
  - End stage renal disease [Unknown]
